FAERS Safety Report 7595827-1 (Version None)
Quarter: 2011Q3

REPORT INFORMATION
  Report Type: 
  Country: None (occurrence: None)
  Receive Date: 20110707
  Receipt Date: 20110630
  Transmission Date: 20111222
  Serious: No
  Sender: FDA-Public Use
  Company Number: US-PFIZER INC-2011149836

PATIENT
  Sex: Male

DRUGS (2)
  1. EFFEXOR XR [Suspect]
  2. VENLAFAXINE HCL [Suspect]
     Dosage: UNK

REACTIONS (1)
  - FEELING ABNORMAL [None]
